FAERS Safety Report 9869750 (Version 1)
Quarter: 2014Q1

REPORT INFORMATION
  Report Type: Spontaneous
  Country: US (occurrence: None)
  Receive Date: 20140130
  Receipt Date: 20140130
  Transmission Date: 20141002
  Serious: Yes (Hospitalization, Other)
  Sender: FDA-Public Use
  Company Number: 2013-000951

PATIENT
  Age: 83 Year
  Sex: Female
  Weight: 69.8 kg

DRUGS (16)
  1. ACTONEL (RISEDRONATE SODIUM) TABLET, 150MG [Suspect]
     Indication: OSTEOPOROSIS
     Route: 048
     Dates: end: 20100715
  2. FOSAMAX (ALENDRONATE SODIUM) [Suspect]
     Indication: OSTEOPOROSIS
     Route: 048
     Dates: start: 1993
  3. BONIVA (IBANDRONATE SODIUM) [Suspect]
     Indication: OSTEOPOROSIS
  4. RECLAST [Suspect]
     Indication: OSTEOPOROSIS
     Dosage: DOSAGE / FREQUENCY UNKNOWN
     Route: 042
     Dates: start: 20100715, end: 2011
  5. FOSAMAX D [Suspect]
     Indication: OSTEOPOROSIS
     Route: 048
  6. ALENDRONATE SODIUM (ALENDRONATE SODIUM) (ALENDRONATE SODIUM) [Suspect]
     Indication: OSTEOPOROSIS
     Route: 048
  7. IBANDRONATE SODIUM [Suspect]
     Indication: OSTEOPOROSIS
  8. RISEDRONATE SODIUM [Suspect]
     Indication: OSTEOPOROSIS
     Route: 048
  9. LEVOXYL (LEVOTHYROXINE SODIUM) [Concomitant]
  10. HYDROCHLOROTHIAZIDE (HYDROCHLOROTHIAZIDE) [Concomitant]
  11. VERAPAMIL (VERAPAMIL) [Concomitant]
  12. AMLODIPINE (AMLODIPINE) [Concomitant]
  13. DIOVAN (VALSARTAN) [Concomitant]
  14. COREG (CARVEDILOL) [Concomitant]
  15. CLONAZEPAM (CLONAZEPAM) (CLONAZEPAM) [Concomitant]
  16. TOVIAZ (FESOTERODINE FUMARATE) [Concomitant]

REACTIONS (7)
  - Stress fracture [None]
  - Femur fracture [None]
  - Arthralgia [None]
  - Pathological fracture [None]
  - Skeletal injury [None]
  - Low turnover osteopathy [None]
  - Pain [None]
